FAERS Safety Report 4758619-4 (Version None)
Quarter: 2005Q3

REPORT INFORMATION
  Report Type: 
  Country: None (occurrence: None)
  Receive Date: 20050901
  Receipt Date: 20050822
  Transmission Date: 20060218
  Serious: Yes (Hospitalization)
  Sender: FDA-Public Use
  Company Number: FR-BRISTOL-MYERS SQUIBB COMPANY-13087242

PATIENT
  Age: 62 Year
  Sex: Female

DRUGS (3)
  1. TAXOL [Suspect]
     Indication: BREAST CANCER
     Route: 042
     Dates: start: 20050105, end: 20050301
  2. CARBOPLATIN [Suspect]
     Indication: BREAST CANCER
     Route: 042
     Dates: start: 20050105, end: 20050221
  3. HERCEPTIN [Suspect]
     Indication: BREAST CANCER
     Dates: start: 20050105, end: 20050221

REACTIONS (1)
  - CYSTITIS [None]
